FAERS Safety Report 4984523-2 (Version None)
Quarter: 2006Q2

REPORT INFORMATION
  Report Type: 
  Country: None (occurrence: None)
  Receive Date: 20060427
  Receipt Date: 20060419
  Transmission Date: 20061013
  Serious: Yes (Hospitalization)
  Sender: FDA-Public Use
  Company Number: FR-JNJFOC-20060404450

PATIENT
  Age: 23 Year
  Sex: Male

DRUGS (3)
  1. RISPERDAL [Suspect]
     Route: 048
  2. PRAZEPAM [Concomitant]
  3. RIVOTRIL [Concomitant]

REACTIONS (3)
  - DEPRESSED LEVEL OF CONSCIOUSNESS [None]
  - HYPOVOLAEMIC SHOCK [None]
  - MYDRIASIS [None]
